FAERS Safety Report 10749637 (Version 1)
Quarter: 2015Q1

REPORT INFORMATION
  Report Type: Spontaneous
  Country: IT (occurrence: IT)
  Receive Date: 20150129
  Receipt Date: 20150129
  Transmission Date: 20150721
  Serious: Yes (Hospitalization)
  Sender: FDA-Public Use
  Company Number: IT-MYLANLABS-2015M1002024

PATIENT

DRUGS (2)
  1. CLOPIDOGREL [Suspect]
     Active Substance: CLOPIDOGREL BISULFATE
     Indication: MYOCARDIAL ISCHAEMIA
     Route: 065
  2. ASPIRIN                            /00002701/ [Concomitant]
     Active Substance: ASPIRIN
     Indication: MYOCARDIAL ISCHAEMIA
     Route: 065

REACTIONS (8)
  - Haemolytic anaemia [Unknown]
  - Hepatic ischaemia [Unknown]
  - Thrombotic thrombocytopenic purpura [Unknown]
  - Visceral arterial ischaemia [Unknown]
  - Intestinal ischaemia [Unknown]
  - Renal ischaemia [Unknown]
  - Aortic thrombosis [Unknown]
  - Renal failure [Unknown]
